FAERS Safety Report 18308483 (Version 5)
Quarter: 2023Q1

REPORT INFORMATION
  Report Type: Spontaneous
  Country: IT (occurrence: IT)
  Receive Date: 20200924
  Receipt Date: 20230123
  Transmission Date: 20230418
  Serious: Yes (Other)
  Sender: FDA-Public Use
  Company Number: NVSC2020IT258604

PATIENT
  Age: 83 Year
  Sex: Male

DRUGS (3)
  1. LAPATINIB [Suspect]
     Active Substance: LAPATINIB
     Indication: Colorectal cancer metastatic
     Dosage: 1000 MG, QD (IN 21 DAYS TREATMENT CYCLE)
     Route: 048
  2. TRASTUZUMAB [Suspect]
     Active Substance: TRASTUZUMAB
     Indication: Colorectal cancer metastatic
     Dosage: 4 MG/KG (LOADING DOSE)
     Route: 042
  3. TRASTUZUMAB [Suspect]
     Active Substance: TRASTUZUMAB
     Dosage: 2 MG/KG, QW
     Route: 042

REACTIONS (2)
  - Ejection fraction decreased [Recovering/Resolving]
  - Fatigue [Recovering/Resolving]
